FAERS Safety Report 14855195 (Version 1)
Quarter: 2018Q2

REPORT INFORMATION
  Report Type: Spontaneous
  Country: US (occurrence: US)
  Receive Date: 20180507
  Receipt Date: 20180507
  Transmission Date: 20180711
  Serious: No
  Sender: FDA-Public Use
  Company Number: US-ROCHE-1950606

PATIENT
  Sex: Male

DRUGS (1)
  1. ESBRIET [Suspect]
     Active Substance: PIRFENIDONE
     Indication: IDIOPATHIC PULMONARY FIBROSIS
     Dosage: FORM OF ADMIN - 3 CAPSULES WITH EACH MEAL
     Route: 048
     Dates: start: 2017, end: 2017

REACTIONS (4)
  - Dyspepsia [Recovered/Resolved]
  - Dizziness [Recovered/Resolved]
  - Abdominal discomfort [Unknown]
  - Photosensitivity reaction [Recovered/Resolved]
